FAERS Safety Report 21442615 (Version 6)
Quarter: 2023Q2

REPORT INFORMATION
  Report Type: Report from Study
  Country: US (occurrence: US)
  Receive Date: 20221012
  Receipt Date: 20230616
  Transmission Date: 20230721
  Serious: No
  Sender: FDA-Public Use
  Company Number: US-NOVARTISTESTPH-NVSC2022US229060

PATIENT
  Sex: Female

DRUGS (1)
  1. KESIMPTA [Suspect]
     Active Substance: OFATUMUMAB
     Indication: Multiple sclerosis
     Dosage: 20 MG, QMO
     Route: 058

REACTIONS (7)
  - Hypoaesthesia [Unknown]
  - Musculoskeletal stiffness [Unknown]
  - Balance disorder [Unknown]
  - Suspected COVID-19 [Unknown]
  - Headache [Unknown]
  - Vomiting [Not Recovered/Not Resolved]
  - Gastrooesophageal reflux disease [Recovered/Resolved]
